FAERS Safety Report 25533647 (Version 1)
Quarter: 2025Q3

REPORT INFORMATION
  Report Type: Spontaneous
  Country: US (occurrence: None)
  Receive Date: 20250708
  Receipt Date: 20250708
  Transmission Date: 20251021
  Serious: Yes (Hospitalization, Disabling, Congenital Anomaly, Other)
  Sender: FDA-CTU
  Company Number: None

PATIENT
  Age: 37 Year
  Sex: Female

DRUGS (1)
  1. ARISTADA [Suspect]
     Active Substance: ARIPIPRAZOLE LAUROXIL
     Dosage: OTHER QUANTITY : 1 INJECTION(S);?OTHER FREQUENCY : 1 MONTH;?
     Route: 030
     Dates: start: 20250410

REACTIONS (5)
  - Abortion spontaneous [None]
  - Hypersexuality [None]
  - Gambling [None]
  - Glucose tolerance impaired [None]
  - Neoplasm malignant [None]

NARRATIVE: CASE EVENT DATE: 20200410
